FAERS Safety Report 15501950 (Version 2)
Quarter: 2018Q4

REPORT INFORMATION
  Report Type: Spontaneous
  Country: US (occurrence: US)
  Receive Date: 20181015
  Receipt Date: 20181029
  Transmission Date: 20190205
  Serious: No
  Sender: FDA-Public Use
  Company Number: US-AMGEN-USASP2018125044

PATIENT
  Age: 63 Year
  Sex: Female
  Weight: 73.92 kg

DRUGS (1)
  1. EPOGEN [Suspect]
     Active Substance: ERYTHROPOIETIN
     Indication: AUTOIMMUNE HAEMOLYTIC ANAEMIA
     Dosage: 20000 UNIT, UNK
     Route: 065
     Dates: start: 20080428

REACTIONS (3)
  - Product dose omission [Unknown]
  - Product storage error [Unknown]
  - Off label use [Unknown]

NARRATIVE: CASE EVENT DATE: 20180824
